FAERS Safety Report 9329887 (Version 2)
Quarter: 2013Q4

REPORT INFORMATION
  Report Type: Spontaneous
  Country: US (occurrence: None)
  Receive Date: 20130522
  Receipt Date: 20131003
  Transmission Date: 20140711
  Serious: Yes (Hospitalization)
  Sender: FDA-Public Use
  Company Number: GAM-129-13-US

PATIENT
  Age: 75 Year
  Sex: Female

DRUGS (11)
  1. OCTAGAM [Suspect]
     Indication: PRIMARY IMMUNODEFICIENCY SYNDROME
     Dosage: 60 GM IV Q4WKS
     Route: 042
     Dates: start: 20130103, end: 20130103
  2. CYCLOBENZAPRINE [Concomitant]
  3. HYDROXYCHLOROQUINE [Concomitant]
  4. DOXEPIN [Concomitant]
  5. LEVOTHYROXINE [Concomitant]
  6. ENALAPRIL [Concomitant]
  7. WARFARIN [Concomitant]
  8. SIMVASTATIN [Concomitant]
  9. QUININE SULFATE [Concomitant]
  10. FLUCONAZOLE [Concomitant]
  11. LATANOPROST [Concomitant]

REACTIONS (1)
  - Cellulitis [None]
